FAERS Safety Report 9209258 (Version 1)
Quarter: 2013Q2

REPORT INFORMATION
  Report Type: Spontaneous
  Country: US (occurrence: None)
  Receive Date: 20130403
  Receipt Date: 20130403
  Transmission Date: 20140414
  Serious: Yes (Hospitalization)
  Sender: FDA-Public Use
  Company Number: None

PATIENT
  Age: 78 Year
  Sex: Male

DRUGS (1)
  1. INCLUSIQ [Suspect]
     Indication: CHRONIC MYELOID LEUKAEMIA
     Route: 048
     Dates: start: 20130703

REACTIONS (6)
  - Asthenia [None]
  - Lethargy [None]
  - Headache [None]
  - Dyspnoea [None]
  - Heart rate increased [None]
  - Blood pressure fluctuation [None]
